FAERS Safety Report 7787787-5 (Version None)
Quarter: 2011Q3

REPORT INFORMATION
  Report Type: 
  Country: None (occurrence: None)
  Receive Date: 20110929
  Receipt Date: 20110916
  Transmission Date: 20111222
  Serious: Yes (Death)
  Sender: FDA-Public Use
  Company Number: ES-MYLANLABS-2011S1019896

PATIENT
  Age: 65 Year
  Sex: Male

DRUGS (5)
  1. CYCLOPHOSPHAMIDE [Suspect]
     Indication: CRYOGLOBULINAEMIA
     Dosage: PULSES
     Route: 065
  2. MORPHINE [Concomitant]
     Indication: PAIN
     Dosage: PUMP
     Route: 065
  3. MYCOPHENOLATE MOFETIL [Suspect]
     Indication: CRYOGLOBULINAEMIA
     Route: 065
  4. AZATHIOPRINE [Suspect]
     Indication: CRYOGLOBULINAEMIA
     Route: 065
  5. METHOTREXATE [Suspect]
     Indication: CRYOGLOBULINAEMIA
     Route: 065

REACTIONS (1)
  - SEPSIS [None]
